FAERS Safety Report 13200091 (Version 1)
Quarter: 2017Q1

REPORT INFORMATION
  Report Type: Report from Study
  Country: US (occurrence: US)
  Receive Date: 20170208
  Receipt Date: 20170208
  Transmission Date: 20170428
  Serious: No
  Sender: FDA-Public Use
  Company Number: US-AMGEN-USASL2016019353

PATIENT
  Age: 70 Year
  Sex: Male

DRUGS (3)
  1. NEULASTA [Suspect]
     Active Substance: PEGFILGRASTIM
     Indication: CHRONIC LYMPHOCYTIC LEUKAEMIA
     Dosage: UNK
     Route: 065
  2. RITUXAN [Suspect]
     Active Substance: RITUXIMAB
     Indication: CHRONIC LYMPHOCYTIC LEUKAEMIA
     Dosage: UNK
     Route: 065
  3. TREANDA [Concomitant]
     Active Substance: BENDAMUSTINE HYDROCHLORIDE
     Dosage: UNK

REACTIONS (5)
  - Pruritus [Unknown]
  - Urticaria [Recovered/Resolved]
  - Weight increased [Unknown]
  - Nasal oedema [Unknown]
  - Poor quality sleep [Unknown]
